FAERS Safety Report 12980159 (Version 1)
Quarter: 2016Q4

REPORT INFORMATION
  Report Type: Spontaneous
  Country: GB (occurrence: GB)
  Receive Date: 20161128
  Receipt Date: 20161128
  Transmission Date: 20170207
  Serious: Yes (Life-Threatening, Hospitalization, Other)
  Sender: FDA-Public Use
  Company Number: GB-BRISTOL-MYERS SQUIBB COMPANY-BMS-2016-098949

PATIENT
  Age: 44 Year
  Sex: Male

DRUGS (6)
  1. METFORMIN HYDROCHLORIDE. [Suspect]
     Active Substance: METFORMIN HYDROCHLORIDE
     Indication: PRODUCT USED FOR UNKNOWN INDICATION
     Dosage: UNK, BID
     Route: 048
  2. TILDIEM LP [Suspect]
     Active Substance: DILTIAZEM HYDROCHLORIDE
     Indication: PRODUCT USED FOR UNKNOWN INDICATION
     Dosage: 200 MG, QD
     Route: 048
  3. ATORVASTATIN [Suspect]
     Active Substance: ATORVASTATIN
     Indication: PRODUCT USED FOR UNKNOWN INDICATION
     Dosage: 20 MG, QD
     Route: 048
  4. CLARITHROMYCIN. [Suspect]
     Active Substance: CLARITHROMYCIN
     Indication: BLISTER RUPTURE
     Dosage: 500 MG, UNK
     Route: 048
     Dates: start: 20161103, end: 20161104
  5. LORATADINE. [Suspect]
     Active Substance: LORATADINE
     Indication: BLISTER RUPTURE
     Dosage: 10 MG, QD
     Route: 048
     Dates: start: 20161103, end: 20161104
  6. TRAMADOL. [Suspect]
     Active Substance: TRAMADOL
     Indication: BLISTER RUPTURE
     Dosage: 50 MG, PRN
     Route: 048
     Dates: start: 20161103, end: 20161104

REACTIONS (1)
  - Stevens-Johnson syndrome [Unknown]

NARRATIVE: CASE EVENT DATE: 20161104
